FAERS Safety Report 12865406 (Version 1)
Quarter: 2016Q4

REPORT INFORMATION
  Report Type: Spontaneous
  Country: US (occurrence: US)
  Receive Date: 20161020
  Receipt Date: 20161020
  Transmission Date: 20170207
  Serious: No
  Sender: FDA-Public Use
  Company Number: US-SHIRE-US201614307

PATIENT
  Age: 76 Year
  Sex: Male
  Weight: 113.38 kg

DRUGS (1)
  1. XIIDRA [Suspect]
     Active Substance: LIFITEGRAST
     Indication: DRY EYE
     Dosage: UNK, UNKNOWN; REPORTED 5% SOLUTION
     Route: 047
     Dates: start: 20161005

REACTIONS (2)
  - Instillation site reaction [Unknown]
  - Instillation site pain [Unknown]

NARRATIVE: CASE EVENT DATE: 20161005
